FAERS Safety Report 14701530 (Version 1)
Quarter: 2018Q1

REPORT INFORMATION
  Report Type: Spontaneous
  Country: US (occurrence: US)
  Receive Date: 20180330
  Receipt Date: 20180330
  Transmission Date: 20180509
  Serious: Yes (Other)
  Sender: FDA-Public Use
  Company Number: US-009507513-1504USA015596

PATIENT
  Age: 48 Year
  Sex: Female
  Weight: 111.11 kg

DRUGS (3)
  1. ZOCOR [Suspect]
     Active Substance: SIMVASTATIN
     Indication: HYPERLIPIDAEMIA
     Dosage: 10 MG, QD
     Route: 048
     Dates: end: 20141215
  2. CUBICIN [Suspect]
     Active Substance: DAPTOMYCIN
     Dosage: 5.93 MG/KG, QD
     Route: 042
     Dates: start: 20141125, end: 20150105
  3. CUBICIN [Suspect]
     Active Substance: DAPTOMYCIN
     Indication: STAPHYLOCOCCAL INFECTION
     Dosage: 660 MG, QD
     Route: 042
     Dates: start: 20141125, end: 20150105

REACTIONS (1)
  - Blood creatine phosphokinase increased [Recovered/Resolved]

NARRATIVE: CASE EVENT DATE: 20141215
